FAERS Safety Report 4928118-5 (Version None)
Quarter: 2006Q1

REPORT INFORMATION
  Report Type: 
  Country: None (occurrence: None)
  Receive Date: 20060223
  Receipt Date: 20060214
  Transmission Date: 20060701
  Serious: Yes (Hospitalization)
  Sender: FDA-Public Use
  Company Number: GXKR2006NL00940

PATIENT
  Age: 53 Year
  Sex: Female
  Weight: 65 kg

DRUGS (9)
  1. PREDNISONE [Suspect]
     Indication: RHEUMATOID ARTHRITIS
     Dosage: 5 MG, QD, ORAL
     Route: 048
     Dates: start: 20000101
  2. METHOTREXATE [Suspect]
     Indication: RHEUMATOID ARTHRITIS
     Dosage: 20 MG QW, ORAL
     Route: 048
     Dates: start: 19990101, end: 20060113
  3. HUMIRA [Suspect]
     Indication: RHEUMATOID ARTHRITIS
     Dosage: 40 MG, BIW, INJECTION NOS
  4. OMEPRAZOLUM              (OMEPRAZOLE) CAPSULE [Concomitant]
  5. ACIDUM FOLICUM (FOLIC ACID) TABLET [Concomitant]
  6. CARDURA [Concomitant]
  7. AMLODIPINE [Concomitant]
  8. LISINOPRIL [Concomitant]
  9. METOPROLOL TARTRATE (METOPROLOL TARTRATE) TABLET [Concomitant]

REACTIONS (1)
  - PNEUMONIA MYCOPLASMAL [None]
